FAERS Safety Report 12599566 (Version 3)
Quarter: 2016Q3

REPORT INFORMATION
  Report Type: Report from Study
  Country: CA (occurrence: CA)
  Receive Date: 20160727
  Receipt Date: 20160921
  Transmission Date: 20161109
  Serious: Yes (Other)
  Sender: FDA-Public Use
  Company Number: PHHY2016CA086320

PATIENT
  Age: 60 Year
  Sex: Female

DRUGS (8)
  1. ZANTAC [Concomitant]
     Active Substance: RANITIDINE HYDROCHLORIDE
     Indication: PRODUCT USED FOR UNKNOWN INDICATION
     Dosage: UNK
     Route: 065
  2. AVAPRO [Concomitant]
     Active Substance: IRBESARTAN
     Indication: PRODUCT USED FOR UNKNOWN INDICATION
     Dosage: UNK
     Route: 065
  3. LABETALOL [Concomitant]
     Active Substance: LABETALOL\LABETALOL HYDROCHLORIDE
     Indication: PRODUCT USED FOR UNKNOWN INDICATION
     Dosage: UNK
     Route: 065
  4. EXEMESTANE. [Suspect]
     Active Substance: EXEMESTANE
     Indication: PRODUCT USED FOR UNKNOWN INDICATION
     Dosage: UNK
     Route: 065
  5. AFINITOR [Suspect]
     Active Substance: EVEROLIMUS
     Dosage: 5 MG, QD
     Route: 065
  6. CALCIUM [Concomitant]
     Active Substance: CALCIUM
     Indication: PRODUCT USED FOR UNKNOWN INDICATION
     Dosage: UNK
     Route: 065
  7. AFINITOR [Suspect]
     Active Substance: EVEROLIMUS
     Indication: BREAST CANCER
     Dosage: 10 MG, QD
     Route: 048
     Dates: start: 20160610, end: 20160630
  8. VITAMIN D [Concomitant]
     Active Substance: CHOLECALCIFEROL
     Indication: PRODUCT USED FOR UNKNOWN INDICATION
     Dosage: UNK
     Route: 065

REACTIONS (34)
  - Malaise [Recovering/Resolving]
  - Blood pressure decreased [Unknown]
  - Acne [Unknown]
  - Constipation [Unknown]
  - Stomatitis [Unknown]
  - Hyperhidrosis [Unknown]
  - Stress [Unknown]
  - Peripheral swelling [Unknown]
  - Glossodynia [Unknown]
  - Speech disorder [Unknown]
  - Dry mouth [Unknown]
  - Musculoskeletal pain [Unknown]
  - Toothache [Unknown]
  - Noninfective gingivitis [Unknown]
  - Epistaxis [Unknown]
  - Platelet count decreased [Unknown]
  - Rash [Unknown]
  - Feeding disorder [Unknown]
  - Fatigue [Recovering/Resolving]
  - Mood altered [Unknown]
  - Asthenia [Unknown]
  - Headache [Unknown]
  - White blood cell count increased [Unknown]
  - Cheilitis [Unknown]
  - Nasal dryness [Unknown]
  - Poor quality sleep [Unknown]
  - Lip pain [Unknown]
  - Chills [Unknown]
  - Pruritus [Unknown]
  - Arthralgia [Unknown]
  - Facial pain [Unknown]
  - Syncope [Unknown]
  - Pain in extremity [Unknown]
  - Oral pain [Unknown]

NARRATIVE: CASE EVENT DATE: 20160622
